FAERS Safety Report 5521618-9 (Version None)
Quarter: 2007Q4

REPORT INFORMATION
  Report Type: 
  Country: None (occurrence: None)
  Receive Date: 20071119
  Receipt Date: 20071119
  Transmission Date: 20080405
  Serious: No
  Sender: FDA-Public Use
  Company Number: None

PATIENT
  Age: 67 Year
  Sex: Male

DRUGS (1)
  1. CYCLOBENZAPRINE HCL [Suspect]
     Dosage: 10MG  TID  PO
     Route: 048
     Dates: start: 20070815, end: 20070819

REACTIONS (1)
  - CONFUSIONAL STATE [None]
